FAERS Safety Report 22309953 (Version 1)
Quarter: 2023Q2

REPORT INFORMATION
  Report Type: Spontaneous
  Country: US (occurrence: US)
  Receive Date: 20230511
  Receipt Date: 20230511
  Transmission Date: 20230721
  Serious: Yes (Other)
  Sender: FDA-Public Use
  Company Number: US-SANOFI-01607477

PATIENT
  Sex: Female

DRUGS (1)
  1. LANTUS SOLOSTAR [Suspect]
     Active Substance: INSULIN GLARGINE
     Indication: Diabetes mellitus
     Dosage: UNK
     Route: 065

REACTIONS (4)
  - Hip arthroplasty [Unknown]
  - Bradykinesia [Unknown]
  - Depressed mood [Unknown]
  - Crying [Unknown]

NARRATIVE: CASE EVENT DATE: 20230101
